FAERS Safety Report 4655362-7 (Version None)
Quarter: 2005Q2

REPORT INFORMATION
  Report Type: 
  Country: None (occurrence: None)
  Receive Date: 20050505
  Receipt Date: 20050414
  Transmission Date: 20051028
  Serious: Yes (Other)
  Sender: FDA-Public Use
  Company Number: USA050495721

PATIENT
  Age: 86 Year
  Sex: Female

DRUGS (1)
  1. CYMBALTA [Suspect]
     Indication: MAJOR DEPRESSION
     Dates: start: 20050201

REACTIONS (2)
  - SEROTONIN SYNDROME [None]
  - TREATMENT NONCOMPLIANCE [None]
